FAERS Safety Report 19809337 (Version 1)
Quarter: 2021Q3

REPORT INFORMATION
  Report Type: Report from Study
  Country: US (occurrence: US)
  Receive Date: 20210908
  Receipt Date: 20210908
  Transmission Date: 20211014
  Serious: No
  Sender: FDA-Public Use
  Company Number: NVSC2021US204375

PATIENT
  Sex: Female

DRUGS (1)
  1. KESIMPTA [Suspect]
     Active Substance: OFATUMUMAB
     Indication: MULTIPLE SCLEROSIS
     Dosage: 20 MG (BENEATH THE SKIN)
     Route: 058
     Dates: start: 20210906

REACTIONS (5)
  - Influenza [Unknown]
  - Chills [Unknown]
  - Chest discomfort [Unknown]
  - Pain [Unknown]
  - Fatigue [Unknown]
